FAERS Safety Report 5824635-4 (Version None)
Quarter: 2008Q3

REPORT INFORMATION
  Report Type: 
  Country: None (occurrence: None)
  Receive Date: 20080722
  Receipt Date: 20080707
  Transmission Date: 20090109
  Serious: Yes (Disabling)
  Sender: FDA-Public Use
  Company Number: TNZES200800123

PATIENT
  Age: 30 Year
  Sex: Female
  Weight: 49 kg

DRUGS (3)
  1. INNOHEP [Suspect]
     Indication: ANTITHROMBIN III DEFICIENCY
     Dosage: DAILY, SUBCUTANEOUS
     Route: 058
     Dates: start: 20040201, end: 20041001
  2. INNOHEP [Suspect]
     Indication: PREGNANCY
     Dosage: DAILY, SUBCUTANEOUS
     Route: 058
     Dates: start: 20040201, end: 20041001
  3. CALCIUM (CALCIUM) [Concomitant]

REACTIONS (3)
  - DRUG EXPOSURE DURING PREGNANCY [None]
  - FRACTURE [None]
  - OSTEOPOROSIS [None]
